FAERS Safety Report 14406550 (Version 1)
Quarter: 2018Q1

REPORT INFORMATION
  Report Type: Spontaneous
  Country: US (occurrence: US)
  Receive Date: 20180116
  Receipt Date: 20180116
  Transmission Date: 20180509
  Serious: Yes (Hospitalization)
  Sender: FDA-Public Use
  Company Number: None

PATIENT
  Age: 61 Year
  Sex: Female

DRUGS (1)
  1. CAPECITABINE 500 MG TABLETS [Suspect]
     Active Substance: CAPECITABINE
     Indication: NECK MASS
     Dosage: TWO TABLETS TWICE DAILY BY MOUTH
     Route: 048
     Dates: start: 20171109

REACTIONS (2)
  - Pulmonary embolism [None]
  - Drug dose omission [None]

NARRATIVE: CASE EVENT DATE: 20171221
